FAERS Safety Report 8802986 (Version 2)
Quarter: 2012Q4

REPORT INFORMATION
  Report Type: Report from Study
  Country: PK (occurrence: PK)
  Receive Date: 20120924
  Receipt Date: 20121113
  Transmission Date: 20130627
  Serious: Yes (Other)
  Sender: FDA-Public Use
  Company Number: PHHY2012PK081059

PATIENT
  Age: 68 Year
  Sex: Male
  Weight: 82.7 kg

DRUGS (4)
  1. INVESTIGATIONAL DRUG [Suspect]
     Indication: HYPERTENSION
     Dosage: 1 DF, daily (80/5 mg)
     Route: 048
     Dates: start: 20120223, end: 20120529
  2. ATORVASTATIN [Concomitant]
     Indication: DYSLIPIDAEMIA
     Dosage: (at night)
     Route: 048
  3. SEVELAMER [Concomitant]
     Indication: HYPERPHOSPHATAEMIA
     Dosage: UNK UKN, UNK
     Route: 048
  4. ASPIRIN [Concomitant]
     Indication: MYOCARDIAL ISCHAEMIA
     Dosage: UNK UKN, UNK
     Route: 048

REACTIONS (3)
  - Renal failure chronic [Recovering/Resolving]
  - Blood urea increased [Unknown]
  - Blood creatinine increased [Unknown]
